FAERS Safety Report 6892603-X (Version None)
Quarter: 2010Q3

REPORT INFORMATION
  Report Type: 
  Country: None (occurrence: None)
  Receive Date: 20100731
  Receipt Date: 20080729
  Transmission Date: 20110219
  Serious: Yes (Other)
  Sender: FDA-Public Use
  Company Number: US-PFIZER INC-2008051538

PATIENT
  Sex: Female

DRUGS (2)
  1. NORVASC [Suspect]
  2. AMLODIPINE [Suspect]

REACTIONS (3)
  - BLINDNESS UNILATERAL [None]
  - BLOOD PRESSURE FLUCTUATION [None]
  - DRUG INEFFECTIVE [None]
